FAERS Safety Report 5383793-9 (Version None)
Quarter: 2007Q3

REPORT INFORMATION
  Report Type: 
  Country: None (occurrence: None)
  Receive Date: 20070706
  Receipt Date: 20070627
  Transmission Date: 20080115
  Serious: Yes (Other)
  Sender: FDA-Public Use
  Company Number: CHPA2007US05992

PATIENT
  Age: 5 Year
  Sex: Male
  Weight: 20.4 kg

DRUGS (19)
  1. TRANSDERM SCOP [Suspect]
     Indication: DROOLING
     Dosage: 1.5 MG, Q72H, TRANSDERMAL
     Route: 062
     Dates: end: 20070424
  2. TRANSDERM SCOP [Suspect]
     Indication: DROOLING
     Dosage: 1.5 MG, Q72H, TRANSDERMAL
     Route: 062
     Dates: start: 20070511
  3. MULTIVITAMINS (ASCORBIC ACID, ERGOCALCIFEROL, FOLIC ACID, NICOTINAMIDE [Concomitant]
  4. MIRALAX [Concomitant]
  5. FOCALIN [Concomitant]
  6. PREVACID [Concomitant]
  7. ADVAIR DISKUS 100/50 [Concomitant]
  8. ELIDEL [Concomitant]
  9. NASONEX [Concomitant]
  10. TRIAMCINOLONE ACETONIDE [Concomitant]
  11. ZANTAC [Concomitant]
  12. ZYRTEC (CETRIIZINE HYDROCHLORIDE) [Concomitant]
  13. TEGRETOL [Concomitant]
  14. PHENOBARBITAL TAB [Concomitant]
  15. DIMETAPP CHILDRENS C +C (DEXTROMETHORPHAN, PSEUDOEPHEDRINE) [Concomitant]
  16. PATANOL [Concomitant]
  17. XOPENEX [Concomitant]
  18. DIASTAT          ^ATHENA^ (DIAZEPAM) [Concomitant]
  19. SINGULAIR [Concomitant]

REACTIONS (8)
  - APPLICATION SITE PRURITUS [None]
  - EYE SWELLING [None]
  - GRAND MAL CONVULSION [None]
  - OEDEMA PERIPHERAL [None]
  - PYREXIA [None]
  - RASH [None]
  - URTICARIA [None]
  - WRONG TECHNIQUE IN DRUG USAGE PROCESS [None]
